FAERS Safety Report 9368280 (Version 1)
Quarter: 2013Q2

REPORT INFORMATION
  Report Type: Spontaneous
  Country: US (occurrence: US)
  Receive Date: 20130625
  Receipt Date: 20130625
  Transmission Date: 20140414
  Serious: Yes (Other)
  Sender: FDA-Public Use
  Company Number: US-SANOFI-AVENTIS-2013SA063350

PATIENT
  Sex: Female
  Weight: 60 kg

DRUGS (3)
  1. PLAVIX [Suspect]
     Route: 065
  2. ANGIOMAX [Suspect]
     Indication: PERCUTANEOUS CORONARY INTERVENTION
     Route: 040
     Dates: start: 2012, end: 2012
  3. ANGIOMAX [Suspect]
     Indication: PERCUTANEOUS CORONARY INTERVENTION
     Route: 041
     Dates: start: 2012

REACTIONS (2)
  - Device occlusion [Recovered/Resolved]
  - Drug administration error [Unknown]
